FAERS Safety Report 5284800-4 (Version None)
Quarter: 2007Q1

REPORT INFORMATION
  Report Type: 
  Country: None (occurrence: None)
  Receive Date: 20061229
  Receipt Date: 20060515
  Transmission Date: 20070707
  Serious: Yes (Death)
  Sender: FDA-Public Use
  Company Number: PHEH2006US04287

PATIENT
  Age: 68 Year
  Sex: Male

DRUGS (12)
  1. CLOZARIL [Suspect]
     Indication: PSYCHOTIC DISORDER
     Dosage: 25 MG, Q NOON, 50 MG QPM, ORAL
     Route: 048
     Dates: start: 20040601
  2. SINEMET [Concomitant]
  3. ATIVAN [Concomitant]
  4. RESTORIL [Concomitant]
  5. VICODIN [Concomitant]
  6. MORPHINE [Concomitant]
  7. METFORMIN HCL [Concomitant]
  8. DOXAZOSIN (DOXAZOSIN) [Concomitant]
  9. SINEMET CR [Concomitant]
  10. FLORINEF [Concomitant]
  11. ACIPHEX [Concomitant]
  12. METOPROLOL TARTRATE [Concomitant]

REACTIONS (1)
  - PARKINSON'S DISEASE [None]
